FAERS Safety Report 4810056-X (Version None)
Quarter: 2005Q4

REPORT INFORMATION
  Report Type: 
  Country: None (occurrence: None)
  Receive Date: 20051024
  Receipt Date: 20051012
  Transmission Date: 20060501
  Serious: Yes (Hospitalization, Other)
  Sender: FDA-Public Use
  Company Number: 2005141991

PATIENT
  Age: 77 Year
  Sex: Female

DRUGS (2)
  1. ARTHROTEC [Suspect]
     Indication: ARTHRALGIA
     Dosage: 300 MG (100 MG, 3 IN 1 D), ORAL
     Route: 048
     Dates: start: 20050801, end: 20050810
  2. COLCHICINE ^HOUDE^ (COLCHICINE) [Suspect]
     Indication: GOUT
     Dosage: 2 MG (1 MG, 2 IN 1 D), ORAL
     Route: 048
     Dates: start: 20050801, end: 20050810

REACTIONS (11)
  - BLOOD CREATININE INCREASED [None]
  - BLOOD UREA DECREASED [None]
  - CYTOLYTIC HEPATITIS [None]
  - DERMATITIS EXFOLIATIVE [None]
  - ERYTHEMA [None]
  - EYELID OEDEMA [None]
  - HEPATIC FAILURE [None]
  - HYPERSENSITIVITY [None]
  - OEDEMA PERIPHERAL [None]
  - PYREXIA [None]
  - SKIN EXFOLIATION [None]
